FAERS Safety Report 24988657 (Version 1)
Quarter: 2025Q1

REPORT INFORMATION
  Report Type: Spontaneous
  Country: US (occurrence: US)
  Receive Date: 20250220
  Receipt Date: 20250220
  Transmission Date: 20250408
  Serious: No
  Sender: TARO
  Company Number: US-TARO PHARMACEUTICALS USA INC.-2024TAR00454

PATIENT

DRUGS (2)
  1. MINOXIDIL [Suspect]
     Active Substance: MINOXIDIL
     Indication: Alopecia
     Dosage: UNK, A LITTLE SQUIRT OF IT, USING EVERY MORNING, ON SCALP AREA
     Route: 061
     Dates: start: 202403
  2. OXCARBAZEPINE [Concomitant]
     Active Substance: OXCARBAZEPINE
     Indication: Epilepsy
     Route: 065

REACTIONS (1)
  - Trichorrhexis [Not Recovered/Not Resolved]

NARRATIVE: CASE EVENT DATE: 20240401
